FAERS Safety Report 10449841 (Version 1)
Quarter: 2014Q3

REPORT INFORMATION
  Report Type: Spontaneous
  Country: GB (occurrence: None)
  Receive Date: 20140910
  Receipt Date: 20140910
  Transmission Date: 20150326
  Serious: Yes (Hospitalization, Other)
  Sender: FDA-Public Use
  Company Number: FK201403595

PATIENT
  Age: 92 Year
  Sex: Female

DRUGS (8)
  1. CELEBREX [Suspect]
     Active Substance: CELECOXIB
     Indication: LOCAL SWELLING
     Route: 048
     Dates: end: 20120616
  2. PERINDOPRIL (PERINDOPRIL) [Suspect]
     Active Substance: PERINDOPRIL
     Indication: PRODUCT USED FOR UNKNOWN INDICATION
     Route: 048
     Dates: end: 20120616
  3. FERROUS SULFATE [Concomitant]
     Active Substance: FERROUS SULFATE\FERROUS SULFATE, DRIED
  4. METFORMIN [Concomitant]
     Active Substance: METFORMIN HYDROCHLORIDE
  5. SIMVASTATIN. [Concomitant]
     Active Substance: SIMVASTATIN
  6. GLICLAZIDE [Concomitant]
     Active Substance: GLICLAZIDE
  7. LANSOPRAZOLE. [Concomitant]
     Active Substance: LANSOPRAZOLE
  8. FUROSEMIDE (MANUFACTURER UNKNOWN) (FUROSEMIDE) (FUROSEMIDE) [Suspect]
     Active Substance: FUROSEMIDE
     Indication: LOCAL SWELLING
     Route: 048
     Dates: end: 20120616

REACTIONS (7)
  - Atrial fibrillation [None]
  - Crepitations [None]
  - Malaise [None]
  - Dizziness [None]
  - Lower respiratory tract infection [None]
  - Renal failure acute [None]
  - Cough [None]

NARRATIVE: CASE EVENT DATE: 20120616
